FAERS Safety Report 7279738-7 (Version None)
Quarter: 2011Q1

REPORT INFORMATION
  Report Type: 
  Country: None (occurrence: None)
  Receive Date: 20110208
  Receipt Date: 20110126
  Transmission Date: 20110831
  Serious: No
  Sender: FDA-Public Use
  Company Number: PHHY2011DE02175

PATIENT
  Sex: Female

DRUGS (5)
  1. RASILEZ [Suspect]
     Indication: HYPERTENSION
     Dosage: 1 DF, QD
     Dates: start: 20110101, end: 20110101
  2. BLOPRESS [Concomitant]
     Indication: HYPERTENSION
     Dosage: 1 DF, BID
  3. TTINOMIN [Concomitant]
     Indication: HYPERTENSION
     Dosage: 1 DF, TID
  4. EUTHYROX [Concomitant]
     Dosage: UNK
  5. NIFEDIPINE [Concomitant]
     Indication: HYPERTENSION
     Dosage: AS NEEDED

REACTIONS (3)
  - CHROMATURIA [None]
  - RENAL PAIN [None]
  - FLANK PAIN [None]
